FAERS Safety Report 12912983 (Version 1)
Quarter: 2016Q4

REPORT INFORMATION
  Report Type: Spontaneous
  Country: GB (occurrence: GB)
  Receive Date: 20161104
  Receipt Date: 20161104
  Transmission Date: 20170207
  Serious: Yes (Other)
  Sender: FDA-Public Use
  Company Number: GB-PFIZER INC-2016509443

PATIENT
  Age: 38 Year
  Sex: Female

DRUGS (2)
  1. COCODAMOL [Concomitant]
     Active Substance: ACETAMINOPHEN\CODEINE PHOSPHATE
     Indication: BACK PAIN
     Dosage: UNK
  2. VENLAFAXINE HCL [Suspect]
     Active Substance: VENLAFAXINE HYDROCHLORIDE
     Indication: DEPRESSION
     Dosage: 225 MG, 1X/DAY (150 MG AND 75MG DAILY)
     Route: 048
     Dates: start: 20161009

REACTIONS (13)
  - Dyspnoea [Not Recovered/Not Resolved]
  - Mental impairment [Unknown]
  - Nausea [Unknown]
  - Product quality issue [Unknown]
  - Influenza like illness [Not Recovered/Not Resolved]
  - Dizziness [Unknown]
  - Lethargy [Unknown]
  - Hyperhidrosis [Unknown]
  - Activities of daily living impaired [Unknown]
  - Feeling abnormal [Unknown]
  - Feeling abnormal [Not Recovered/Not Resolved]
  - Oropharyngeal pain [Not Recovered/Not Resolved]
  - Pyrexia [Unknown]

NARRATIVE: CASE EVENT DATE: 20161009
